FAERS Safety Report 21638058 (Version 2)
Quarter: 2024Q1

REPORT INFORMATION
  Report Type: Report from Study
  Country: ES (occurrence: ES)
  Receive Date: 20221124
  Receipt Date: 20240325
  Transmission Date: 20240410
  Serious: Yes (Hospitalization)
  Sender: FDA-Public Use
  Company Number: ES-ABBVIE-4211297

PATIENT
  Age: 59 Year
  Sex: Female

DRUGS (2)
  1. ADALIMUMAB [Suspect]
     Active Substance: ADALIMUMAB\ISOPROPYL ALCOHOL
     Indication: Product used for unknown indication
     Route: 058
  2. METHOTREXATE [Suspect]
     Active Substance: METHOTREXATE
     Indication: Product used for unknown indication
     Route: 065

REACTIONS (11)
  - Mycobacterium tuberculosis complex test positive [Unknown]
  - Weight decreased [Unknown]
  - Odynophagia [Unknown]
  - Dysphagia [Unknown]
  - Dysphonia [Unknown]
  - Decreased appetite [Unknown]
  - Productive cough [Unknown]
  - Pyrexia [Recovered/Resolved]
  - Dyspnoea exertional [Unknown]
  - Sputum discoloured [Unknown]
  - Granuloma [Unknown]

NARRATIVE: CASE EVENT DATE: 20180101
